FAERS Safety Report 7069488-4 (Version None)
Quarter: 2010Q4

REPORT INFORMATION
  Report Type: 
  Country: None (occurrence: None)
  Receive Date: 20101028
  Receipt Date: 20100106
  Transmission Date: 20110411
  Serious: No
  Sender: FDA-Public Use
  Company Number: US-WYE-H12905310

PATIENT
  Age: 75 Year
  Sex: Female

DRUGS (1)
  1. AMIODARONE HCL [Suspect]
     Dosage: UNKNOWN
     Route: 065

REACTIONS (1)
  - DYSPNOEA [None]
